FAERS Safety Report 24153835 (Version 1)
Quarter: 2024Q3

REPORT INFORMATION
  Report Type: Spontaneous
  Country: JP (occurrence: JP)
  Receive Date: 20240730
  Receipt Date: 20240730
  Transmission Date: 20241017
  Serious: Yes (Death, Other)
  Sender: ABBVIE
  Company Number: JP-ABBVIE-5858578

PATIENT

DRUGS (2)
  1. VENCLEXTA [Suspect]
     Active Substance: VENETOCLAX
     Indication: Acute myeloid leukaemia
     Route: 048
  2. AZACITIDINE [Concomitant]
     Active Substance: AZACITIDINE
     Indication: Acute myeloid leukaemia
     Dosage: 75 MG/M2

REACTIONS (4)
  - Infection [Fatal]
  - Nephroblastoma [Unknown]
  - Acute myeloid leukaemia recurrent [Fatal]
  - Acute myeloid leukaemia [Unknown]
